FAERS Safety Report 5497791-8 (Version None)
Quarter: 2007Q4

REPORT INFORMATION
  Report Type: 
  Country: None (occurrence: None)
  Receive Date: 20071025
  Receipt Date: 20071008
  Transmission Date: 20080405
  Serious: No
  Sender: FDA-Public Use
  Company Number: A0641515A

PATIENT
  Age: 17 Year
  Sex: Male
  Weight: 45.5 kg

DRUGS (4)
  1. ADVAIR DISKUS 100/50 [Suspect]
     Indication: ASTHMA
     Dosage: 1PUFF TWICE PER DAY
     Route: 055
     Dates: start: 20040101
  2. SINGULAIR [Concomitant]
  3. ALLEGRA [Concomitant]
  4. NASONEX [Concomitant]

REACTIONS (5)
  - AGITATION [None]
  - INITIAL INSOMNIA [None]
  - INSOMNIA [None]
  - MUSCLE TIGHTNESS [None]
  - PAIN IN EXTREMITY [None]
